FAERS Safety Report 4481899-X (Version None)
Quarter: 2004Q4

REPORT INFORMATION
  Report Type: 
  Country: None (occurrence: None)
  Receive Date: 20041022
  Receipt Date: 20041014
  Transmission Date: 20050328
  Serious: Yes (Hospitalization)
  Sender: FDA-Public Use
  Company Number: JP-JNJFOC-20041004725

PATIENT
  Sex: Female
  Weight: 50 kg

DRUGS (4)
  1. REMICADE [Suspect]
  2. REMICADE [Suspect]
     Indication: RHEUMATOID ARTHRITIS
  3. RHEUMATREX [Suspect]
     Indication: DRUG USE FOR UNKNOWN INDICATION
     Route: 049
  4. PREDNISOLONE [Concomitant]
     Route: 049

REACTIONS (2)
  - DRUG INTERACTION [None]
  - PNEUMOCYSTIS CARINII PNEUMONIA [None]
